FAERS Safety Report 12341894 (Version 7)
Quarter: 2016Q4

REPORT INFORMATION
  Report Type: Spontaneous
  Country: US (occurrence: US)
  Receive Date: 20160506
  Receipt Date: 20161021
  Transmission Date: 20170207
  Serious: Yes (Other)
  Sender: FDA-Public Use
  Company Number: US-ACTELION-A-NJ2016-135474

PATIENT
  Age: 67 Year
  Sex: Male

DRUGS (7)
  1. OPSUMIT [Suspect]
     Active Substance: MACITENTAN
     Indication: PULMONARY ARTERIAL HYPERTENSION
     Dosage: 10 MG, QD
     Route: 048
     Dates: start: 20141015
  2. AMLODIPINE [Concomitant]
     Active Substance: AMLODIPINE BESYLATE
  3. ADEMPAS [Concomitant]
     Active Substance: RIOCIGUAT
  4. UPTRAVI [Suspect]
     Active Substance: SELEXIPAG
     Dosage: 200 UNK, UNK
     Route: 048
     Dates: start: 20160419, end: 20160920
  5. SILDENAFIL. [Concomitant]
     Active Substance: SILDENAFIL
  6. UPTRAVI [Suspect]
     Active Substance: SELEXIPAG
     Dosage: 400 MCG, BID
     Route: 048
  7. UPTRAVI [Suspect]
     Active Substance: SELEXIPAG
     Indication: PULMONARY ARTERIAL HYPERTENSION
     Dosage: 600 MCG, BID
     Route: 048

REACTIONS (8)
  - Malaise [Unknown]
  - Abdominal pain upper [Recovering/Resolving]
  - Myalgia [Unknown]
  - Dyspepsia [Recovering/Resolving]
  - Abdominal discomfort [Recovering/Resolving]
  - Dialysis [Unknown]
  - Vomiting [Unknown]
  - Headache [Unknown]
